FAERS Safety Report 7309420-9 (Version None)
Quarter: 2011Q1

REPORT INFORMATION
  Report Type: 
  Country: None (occurrence: None)
  Receive Date: 20110223
  Receipt Date: 20110214
  Transmission Date: 20110831
  Serious: Yes (Hospitalization)
  Sender: FDA-Public Use
  Company Number: US-ASTRAZENECA-2011SE08551

PATIENT
  Sex: Female

DRUGS (3)
  1. ATROVENT [Concomitant]
  2. PULMICORT RESPULES [Suspect]
     Indication: DYSPNOEA
     Route: 055
  3. ALBUTEROL [Concomitant]

REACTIONS (2)
  - RESPIRATORY DISTRESS [None]
  - CONVULSION [None]
